FAERS Safety Report 6972626-2 (Version None)
Quarter: 2010Q3

REPORT INFORMATION
  Report Type: 
  Country: None (occurrence: None)
  Receive Date: 20100909
  Receipt Date: 20100826
  Transmission Date: 20110219
  Serious: Yes (Hospitalization, Other)
  Sender: FDA-Public Use
  Company Number: US-JNJCH-2010011284

PATIENT
  Sex: Male
  Weight: 38.1 kg

DRUGS (3)
  1. CHILDREN'S ZYRTEC ALLERGY [Suspect]
     Indication: HYPERSENSITIVITY
     Dosage: TEXT:1 TEASPOONFUL ONCE A DAY
     Route: 048
     Dates: start: 20100301, end: 20100422
  2. MOTRIN [Suspect]
     Indication: SINUS DISORDER
     Dosage: TEXT:UNKNOWN
     Route: 048
     Dates: start: 20100301
  3. TYLENOL [Suspect]
     Indication: SINUS DISORDER
     Dosage: TEXT:UNKNOWN
     Route: 048

REACTIONS (8)
  - BACK PAIN [None]
  - CLOSTRIDIAL INFECTION [None]
  - CROHN'S DISEASE [None]
  - IRON DEFICIENCY ANAEMIA [None]
  - PRODUCT QUALITY ISSUE [None]
  - RED BLOOD CELL SEDIMENTATION RATE INCREASED [None]
  - TENDON PAIN [None]
  - WEIGHT DECREASED [None]
